FAERS Safety Report 15227825 (Version 3)
Quarter: 2018Q3

REPORT INFORMATION
  Report Type: Spontaneous
  Country: US (occurrence: US)
  Receive Date: 20180801
  Receipt Date: 20180831
  Transmission Date: 20181010
  Serious: No
  Sender: FDA-Public Use
  Company Number: US-BIOGEN-2018BI00615436

PATIENT
  Sex: Female

DRUGS (2)
  1. AMPYRA [Concomitant]
     Active Substance: DALFAMPRIDINE
     Indication: GAIT DISTURBANCE
     Route: 048
     Dates: start: 20180125
  2. AVONEX [Suspect]
     Active Substance: INTERFERON BETA-1A
     Indication: MULTIPLE SCLEROSIS
     Route: 065
     Dates: start: 1980

REACTIONS (14)
  - Psoriasis [Recovered/Resolved]
  - Vomiting [Unknown]
  - Paraesthesia [Unknown]
  - Memory impairment [Unknown]
  - Malaise [Unknown]
  - Nausea [Unknown]
  - Multiple sclerosis relapse [Unknown]
  - Peripheral swelling [Unknown]
  - Gastric disorder [Recovered/Resolved]
  - Gait disturbance [Unknown]
  - Hypertension [Recovered/Resolved]
  - Psoriatic arthropathy [Unknown]
  - Diarrhoea [Recovered/Resolved]
  - Asthenia [Unknown]
